FAERS Safety Report 23390948 (Version 1)
Quarter: 2024Q1

REPORT INFORMATION
  Report Type: Spontaneous
  Country: US (occurrence: US)
  Receive Date: 20240111
  Receipt Date: 20240111
  Transmission Date: 20240410
  Serious: Yes (Hospitalization, Other)
  Sender: FDA-Public Use
  Company Number: US-MLMSERVICE-20231225-4615646-1

PATIENT
  Age: 66 Year
  Sex: Female

DRUGS (2)
  1. HEPARIN [Suspect]
     Active Substance: HEPARIN SODIUM
     Indication: Subarachnoid haemorrhage
     Dosage: 3 TIMES PER DAY
     Route: 058
  2. HEPARIN [Suspect]
     Active Substance: HEPARIN SODIUM
     Indication: Thrombosis prophylaxis
     Dosage: UNFRACTIONATED
     Route: 042

REACTIONS (4)
  - Post thrombotic syndrome [Unknown]
  - Heparin-induced thrombocytopenia [Recovered/Resolved]
  - Pulmonary embolism [Unknown]
  - Product use in unapproved indication [Unknown]
